FAERS Safety Report 8801545 (Version 2)
Quarter: 2012Q4

REPORT INFORMATION
  Report Type: 
  Country: JP (occurrence: JP)
  Receive Date: 20120921
  Receipt Date: 20121105
  Transmission Date: 20130627
  Serious: Yes (Death)
  Sender: FDA-Public Use
  Company Number: JP-JNJFOC-20120905403

PATIENT
  Age: 58 Year
  Sex: Female

DRUGS (16)
  1. SIMPONI [Suspect]
     Indication: RHEUMATOID ARTHRITIS
     Route: 058
     Dates: start: 20110929, end: 20120830
  2. MEDROL [Suspect]
     Indication: RHEUMATOID ARTHRITIS
     Route: 048
     Dates: start: 20120608, end: 20120910
  3. AMARYL [Suspect]
     Indication: DIABETES MELLITUS
     Route: 048
  4. GLUCOBAY [Suspect]
     Indication: DIABETES MELLITUS
     Route: 048
  5. MELBIN [Suspect]
     Indication: DIABETES MELLITUS
     Route: 048
  6. METOLATE [Suspect]
     Indication: RHEUMATOID ARTHRITIS
     Route: 048
     Dates: start: 20120608, end: 20120910
  7. METOLATE [Suspect]
     Indication: RHEUMATOID ARTHRITIS
     Route: 048
     Dates: end: 20120315
  8. METOLATE [Suspect]
     Indication: RHEUMATOID ARTHRITIS
     Route: 048
     Dates: start: 20120316, end: 20120607
  9. PREDONINE [Concomitant]
     Indication: RHEUMATOID ARTHRITIS
     Route: 048
     Dates: end: 20120607
  10. CELECOX [Concomitant]
     Route: 048
     Dates: end: 20120910
  11. ALTAT [Concomitant]
     Indication: GASTRITIS
     Route: 048
     Dates: end: 20120910
  12. MAGMITT [Concomitant]
     Indication: CONSTIPATION
     Route: 048
     Dates: end: 20120910
  13. MUCODYNE [Concomitant]
     Indication: BRONCHIECTASIS
     Route: 048
     Dates: start: 20110826, end: 20120215
  14. MUCOSOLVAN [Concomitant]
     Indication: BRONCHIECTASIS
     Route: 048
     Dates: start: 20120216, end: 20120910
  15. FOLIAMIN [Concomitant]
     Indication: PROPHYLAXIS
     Route: 048
     Dates: start: 20120316, end: 20120910
  16. FOLIAMIN [Concomitant]
     Indication: PROPHYLAXIS
     Route: 048
     Dates: end: 20120315

REACTIONS (1)
  - Cardio-respiratory arrest [Fatal]
